FAERS Safety Report 9593995 (Version 1)
Quarter: 2013Q3

REPORT INFORMATION
  Report Type: Spontaneous
  Country: US (occurrence: None)
  Receive Date: 20130930
  Receipt Date: 20130930
  Transmission Date: 20140515
  Serious: No
  Sender: FDA-Public Use
  Company Number: 1000047946

PATIENT
  Age: 72 Year
  Sex: Female
  Weight: 59 kg

DRUGS (10)
  1. LINZESS (LINACLOTIDE) (145 MICROGRAM, CAPSULES) [Suspect]
     Indication: IRRITABLE BOWEL SYNDROME
     Dosage: 145 MCG (145 MCG, 1 IN 1 D), ORAL
     Route: 048
     Dates: start: 201306
  2. LINZESS (LINACLOTIDE) (145 MICROGRAM, CAPSULES) [Suspect]
     Indication: CONSTIPATION
     Dosage: 145 MCG (145 MCG, 1 IN 1 D), ORAL
     Route: 048
     Dates: start: 201306
  3. BABY ASPIRIN (ACETYLSALICYLIC ACID) (ACETYLSALICYLIC ACID)? [Concomitant]
  4. CALCIUM (CALCIUM) (CALCIUM) [Concomitant]
  5. LACTULOSE (LACTULOSE) (LACTULOSE) [Concomitant]
  6. MAGNESIUM CHLORIDE HEXAHYDRATE (MAGNESIUM CHLORIDE HEXAHYDRATE) (MAGNESIUM CHLORIDE HEXAHYDRATE)? [Concomitant]
  7. MVI (VITAMINS NOS) (VITAMINS NOS) [Concomitant]
  8. OMEGA-3 (OMEGA-3) (OMEGA-3) [Concomitant]
  9. VAGIFEM (ESTRADIOL) (ESTRADIOL) [Concomitant]
  10. VITAMIN D (VITAMN D) (VITAMIN D) [Concomitant]

REACTIONS (2)
  - Nausea [None]
  - Abdominal pain [None]
